FAERS Safety Report 5653518-8 (Version None)
Quarter: 2008Q1

REPORT INFORMATION
  Report Type: 
  Country: None (occurrence: None)
  Receive Date: 20080306
  Receipt Date: 20080225
  Transmission Date: 20080703
  Serious: Yes (Other)
  Sender: FDA-Public Use
  Company Number: DE-WYE-H02855108

PATIENT
  Age: 65 Year

DRUGS (10)
  1. SIROLIMUS [Suspect]
     Indication: IMMUNOSUPPRESSION
     Route: 065
  2. SIROLIMUS [Suspect]
     Route: 065
  3. MYCOPHENOLATE MOFETIL [Concomitant]
     Indication: IMMUNOSUPPRESSION
     Route: 065
  4. MYCOPHENOLATE MOFETIL [Concomitant]
     Route: 065
  5. MYCOPHENOLATE MOFETIL [Concomitant]
     Route: 065
  6. METHYLPREDNISOLONE [Concomitant]
     Indication: IMMUNOSUPPRESSION
     Route: 065
  7. TACROLIMUS [Concomitant]
     Indication: IMMUNOSUPPRESSION
     Route: 065
  8. TACROLIMUS [Concomitant]
     Route: 065
  9. TACROLIMUS [Concomitant]
     Route: 065
  10. TACROLIMUS [Concomitant]
     Route: 065

REACTIONS (1)
  - KAPOSI'S SARCOMA [None]
